FAERS Safety Report 6712199-2 (Version None)
Quarter: 2010Q2

REPORT INFORMATION
  Report Type: 
  Country: None (occurrence: None)
  Receive Date: 20100505
  Receipt Date: 20100429
  Transmission Date: 20101027
  Serious: Yes (Hospitalization)
  Sender: FDA-Public Use
  Company Number: US-ASTRAZENECA-2010SE19398

PATIENT
  Age: 58 Year
  Sex: Male
  Weight: 74.4 kg

DRUGS (2)
  1. SYMBICORT [Suspect]
     Indication: CHRONIC OBSTRUCTIVE PULMONARY DISEASE
     Dosage: 80/4.5 UG TWICE DAILY.
     Route: 055
     Dates: start: 20090101
  2. VICODIN [Concomitant]
     Route: 065

REACTIONS (2)
  - PNEUMONIA [None]
  - SHOULDER OPERATION [None]
